FAERS Safety Report 9719897 (Version 1)
Quarter: 2013Q4

REPORT INFORMATION
  Report Type: Spontaneous
  Country: BR (occurrence: BR)
  Receive Date: 20131128
  Receipt Date: 20131128
  Transmission Date: 20140711
  Serious: Yes (Other)
  Sender: FDA-Public Use
  Company Number: BR-JNJFOC-20131111759

PATIENT
  Age: 67 Year
  Sex: Female
  Weight: 62 kg

DRUGS (2)
  1. TYLEX [Suspect]
     Indication: PAIN
     Route: 065
     Dates: start: 20131117, end: 20131117
  2. ALDACTONE [Concomitant]
     Indication: BLOOD PRESSURE
     Route: 065
     Dates: start: 2009

REACTIONS (1)
  - Pneumonia [Recovering/Resolving]
